FAERS Safety Report 10708264 (Version 9)
Quarter: 2016Q4

REPORT INFORMATION
  Report Type: Spontaneous
  Country: US (occurrence: US)
  Receive Date: 20150113
  Receipt Date: 20161122
  Transmission Date: 20170206
  Serious: Yes (Hospitalization, Other)
  Sender: FDA-Public Use
  Company Number: US-PFIZER INC-2015010837

PATIENT
  Age: 81 Year
  Sex: Female
  Weight: 61.23 kg

DRUGS (17)
  1. REVATIO [Suspect]
     Active Substance: SILDENAFIL CITRATE
     Indication: PULMONARY HYPERTENSION
     Dosage: 20 MG, 3X/DAY
     Route: 048
     Dates: start: 2004
  2. REVATIO [Suspect]
     Active Substance: SILDENAFIL CITRATE
     Dosage: 20 MG, 3X/DAY
     Route: 048
     Dates: start: 2005
  3. SENNA S [Concomitant]
     Active Substance: DOCUSATE SODIUM\SENNA LEAF
     Dosage: 1 DF, AS NEEDED, (SEENA 8.6 MG/ DOCUAATE 50 MG)
     Route: 048
  4. VITAMIN B6 [Concomitant]
     Active Substance: PYRIDOXINE HYDROCHLORIDE
     Indication: SUPPLEMENTATION THERAPY
     Dosage: 50 MG, DAILY
     Route: 048
     Dates: start: 2004
  5. SYNTHROID [Concomitant]
     Active Substance: LEVOTHYROXINE SODIUM
     Indication: HYPOTHYROIDISM
     Dosage: 100 UG, 1X/DAY
     Route: 048
     Dates: start: 19970722
  6. VITAMIN D3 [Concomitant]
     Active Substance: CHOLECALCIFEROL
     Indication: SUPPLEMENTATION THERAPY
     Dosage: 2000 IU, DAILY
     Route: 048
     Dates: start: 2004
  7. VITAMIN B12 [Concomitant]
     Active Substance: CYANOCOBALAMIN
     Indication: BLOOD HOMOCYSTEINE
     Dosage: 1000 UG/ML, MONTHLY (ONE INJECTION IN THE RIGHT ARM ONCE A MONTH/DIRECTELY 30 DAYS)
     Dates: start: 2005
  8. NAPRO [Concomitant]
  9. TYLENOL [Concomitant]
     Active Substance: ACETAMINOPHEN
     Indication: PAIN
  10. AVAPRO [Concomitant]
     Active Substance: IRBESARTAN
     Indication: HYPERTENSION
     Dosage: 300 MG, 1X/DAY
     Route: 048
  11. ZYRTEC [Concomitant]
     Active Substance: CETIRIZINE HYDROCHLORIDE
     Dosage: 10 MG, AS NEEDED
     Route: 048
  12. TYLENOL [Concomitant]
     Active Substance: ACETAMINOPHEN
     Indication: FATIGUE
  13. REVATIO [Suspect]
     Active Substance: SILDENAFIL CITRATE
     Indication: PULMONARY ARTERIAL HYPERTENSION
     Dosage: 20 MG, 3X/DAY
     Route: 048
     Dates: start: 20050109
  14. FLU [Suspect]
     Active Substance: INFLUENZA VIRUS VACCINE
  15. COLACE [Concomitant]
     Active Substance: DOCUSATE SODIUM
     Dosage: 100 MG, DAILY
     Route: 048
  16. TYLENOL [Concomitant]
     Active Substance: ACETAMINOPHEN
     Indication: INJURY
     Dosage: 325 MG, AS NEEDED (WHEN NEEDED)
     Route: 048
     Dates: start: 2004
  17. FOLIC ACID. [Concomitant]
     Active Substance: FOLIC ACID
     Indication: BLOOD DISORDER
     Dosage: 1 MG, 1X/DAY
     Route: 048

REACTIONS (7)
  - Fall [Recovered/Resolved with Sequelae]
  - Malaise [Recovering/Resolving]
  - Cough [Recovering/Resolving]
  - Hip fracture [Recovered/Resolved with Sequelae]
  - Blood count abnormal [Unknown]
  - Pelvic fracture [Recovered/Resolved with Sequelae]
  - Pneumonia [Recovering/Resolving]

NARRATIVE: CASE EVENT DATE: 20140925
